FAERS Safety Report 24545777 (Version 1)
Quarter: 2024Q4

REPORT INFORMATION
  Report Type: Spontaneous
  Country: US (occurrence: None)
  Receive Date: 20241024
  Receipt Date: 20241024
  Transmission Date: 20250114
  Serious: Yes (Death)
  Sender: Public
  Company Number: None

PATIENT
  Age: 91 Year
  Sex: Male

DRUGS (1)
  1. AMIODARONE [Suspect]
     Active Substance: AMIODARONE
     Indication: Pulmonary thrombosis
     Dates: start: 20240920, end: 20241023

REACTIONS (3)
  - Pulmonary fibrosis [None]
  - Asphyxia [None]
  - Product complaint [None]

NARRATIVE: CASE EVENT DATE: 20240920
